FAERS Safety Report 11870732 (Version 1)
Quarter: 2015Q4

REPORT INFORMATION
  Report Type: Spontaneous
  Country: GB (occurrence: GB)
  Receive Date: 20151228
  Receipt Date: 20151228
  Transmission Date: 20160305
  Serious: Yes (Other)
  Sender: FDA-Public Use
  Company Number: GB-WATSON-2015-15051

PATIENT
  Age: 34 Year
  Sex: Female
  Weight: 60 kg

DRUGS (1)
  1. CLARITHROMYCIN (UNKNOWN) [Suspect]
     Active Substance: CLARITHROMYCIN
     Indication: EAR INFECTION
     Dosage: 500 MG, UNKNOWN
     Route: 048
     Dates: start: 20150705

REACTIONS (6)
  - Heart rate increased [Unknown]
  - Malaise [Unknown]
  - Tinnitus [Unknown]
  - Pruritus [Unknown]
  - Dysgeusia [Unknown]
  - Fatigue [Unknown]
